FAERS Safety Report 21218143 (Version 1)
Quarter: 2022Q3

REPORT INFORMATION
  Report Type: Report from Study
  Country: US (occurrence: US)
  Receive Date: 20220816
  Receipt Date: 20220816
  Transmission Date: 20221027
  Serious: Yes (Hospitalization)
  Sender: FDA-Public Use
  Company Number: US-OTTER-US- US-2022AST000125

PATIENT

DRUGS (1)
  1. OTREXUP [Suspect]
     Active Substance: METHOTREXATE
     Indication: Psoriatic arthropathy
     Dosage: 15 MG, EVERY WEEK
     Route: 058
     Dates: start: 202202

REACTIONS (2)
  - Kidney infection [Unknown]
  - Nephrolithiasis [Unknown]
